FAERS Safety Report 20886600 (Version 1)
Quarter: 2022Q2

REPORT INFORMATION
  Report Type: Spontaneous
  Country: PA (occurrence: PA)
  Receive Date: 20220527
  Receipt Date: 20220527
  Transmission Date: 20220721
  Serious: Yes (Death, Other)
  Sender: FDA-Public Use
  Company Number: PA-GILEAD-2022-0573515

PATIENT
  Age: 67 Year
  Sex: Male

DRUGS (1)
  1. BIKTARVY [Suspect]
     Active Substance: BICTEGRAVIR SODIUM\EMTRICITABINE\TENOFOVIR ALAFENAMIDE FUMARATE
     Indication: HIV infection
     Dosage: UNK
     Route: 048
     Dates: start: 20210721

REACTIONS (4)
  - Hyperosmolar state [Fatal]
  - Ketosis [Fatal]
  - Diabetes mellitus [Unknown]
  - Anaemia [Unknown]

NARRATIVE: CASE EVENT DATE: 20210901
